FAERS Safety Report 15430824 (Version 1)
Quarter: 2018Q3

REPORT INFORMATION
  Report Type: Spontaneous
  Country: US (occurrence: US)
  Receive Date: 20180926
  Receipt Date: 20180926
  Transmission Date: 20181010
  Serious: No
  Sender: FDA-Public Use
  Company Number: US-AVEDRO-AVE-2018-0199-AE

PATIENT

DRUGS (2)
  1. PHOTREXA VISCOUS [Suspect]
     Active Substance: RIBOFLAVIN 5^-PHOSPHATE SODIUM
     Dosage: TWO DROPS EVERY TWO MINUTES FOR ULTRAVIOLET (UV) IRRADIATION
     Route: 047
     Dates: start: 20180823, end: 20180823
  2. PHOTREXA VISCOUS [Suspect]
     Active Substance: RIBOFLAVIN 5^-PHOSPHATE SODIUM
     Indication: KERATOCONUS
     Dosage: TWO DROPS EVERY TWO MINUTES FOR INDUCTION
     Route: 047
     Dates: start: 20180823, end: 20180823

REACTIONS (2)
  - Inappropriate schedule of drug administration [Unknown]
  - No adverse event [Unknown]

NARRATIVE: CASE EVENT DATE: 20180823
